FAERS Safety Report 15450417 (Version 2)
Quarter: 2018Q4

REPORT INFORMATION
  Report Type: Spontaneous
  Country: JP (occurrence: JP)
  Receive Date: 20181001
  Receipt Date: 20181002
  Transmission Date: 20190204
  Serious: Yes (Other)
  Sender: FDA-Public Use
  Company Number: JP-009507513-1710JPN002449J

PATIENT
  Age: 78 Year
  Sex: Male
  Weight: 65 kg

DRUGS (1)
  1. KEYTRUDA [Suspect]
     Active Substance: PEMBROLIZUMAB
     Indication: SQUAMOUS CELL CARCINOMA OF LUNG
     Dosage: 200 MG, Q3W
     Route: 041
     Dates: start: 20170508, end: 20170508

REACTIONS (2)
  - Arthralgia [Unknown]
  - Skin disorder [Recovering/Resolving]

NARRATIVE: CASE EVENT DATE: 20170508
